FAERS Safety Report 6421683-0 (Version None)
Quarter: 2009Q4

REPORT INFORMATION
  Report Type: 
  Country: None (occurrence: None)
  Receive Date: 20091030
  Receipt Date: 20091021
  Transmission Date: 20100525
  Serious: Yes (Hospitalization, Other)
  Sender: FDA-Public Use
  Company Number: ES-ABBOTT-09P-144-0604145-01

PATIENT
  Age: 25 Year
  Sex: Female

DRUGS (2)
  1. HUMIRA [Suspect]
     Indication: CROHN'S DISEASE
     Route: 058
  2. PREDNISONE [Concomitant]
     Indication: INFLAMMATORY BOWEL DISEASE
     Dates: start: 20090520

REACTIONS (3)
  - ABDOMINAL ABSCESS [None]
  - PERITONITIS [None]
  - RENAL FAILURE [None]
